FAERS Safety Report 4464006-9 (Version None)
Quarter: 2004Q4

REPORT INFORMATION
  Report Type: 
  Country: None (occurrence: None)
  Receive Date: 20041001
  Receipt Date: 20040913
  Transmission Date: 20050328
  Serious: Yes (Hospitalization, Other)
  Sender: FDA-Public Use
  Company Number: US-ABBOTT-04P-163-0273197-00

PATIENT
  Sex: Female

DRUGS (4)
  1. HUMIRA [Suspect]
     Indication: RHEUMATOID ARTHRITIS
     Route: 058
     Dates: start: 20030327, end: 20030903
  2. HUMIRA [Suspect]
     Route: 058
     Dates: start: 20030903, end: 20031201
  3. HUMIRA [Suspect]
     Route: 058
     Dates: start: 20040113, end: 20040726
  4. LEVOTHYROXINE SODIUM [Concomitant]
     Indication: HYPOTHYROIDISM
     Route: 048

REACTIONS (6)
  - ARTHRITIS INFECTIVE [None]
  - CONTUSION [None]
  - DYSPEPSIA [None]
  - FALL [None]
  - ROTATOR CUFF SYNDROME [None]
  - STAPHYLOCOCCAL INFECTION [None]
